FAERS Safety Report 8762602 (Version 1)
Quarter: 2012Q4

REPORT INFORMATION
  Report Type: 
  Country: BR (occurrence: BR)
  Receive Date: 20120830
  Receipt Date: 20120830
  Transmission Date: 20130627
  Serious: Yes (Death)
  Sender: FDA-Public Use
  Company Number: BR-ROCHE-1110567

PATIENT
  Sex: Female

DRUGS (3)
  1. AVASTIN [Suspect]
     Indication: COLORECTAL CANCER METASTATIC
     Dates: start: 20091126, end: 20100517
  2. FLUORACILO [Concomitant]
  3. IRINOTECAN [Concomitant]

REACTIONS (1)
  - Death [Fatal]
